FAERS Safety Report 13660846 (Version 1)
Quarter: 2017Q2

REPORT INFORMATION
  Report Type: Spontaneous
  Country: SA (occurrence: SA)
  Receive Date: 20170616
  Receipt Date: 20170616
  Transmission Date: 20170830
  Serious: Yes (Other)
  Sender: FDA-Public Use
  Company Number: SA-PFIZER INC-2017251255

PATIENT
  Age: 11 Year
  Sex: Male

DRUGS (5)
  1. DOXORUBICIN HCL [Suspect]
     Active Substance: DOXORUBICIN HYDROCHLORIDE
     Indication: BURKITT^S LYMPHOMA
     Dosage: UNK UNK, CYCLIC
  2. PREDNISOLONE. [Suspect]
     Active Substance: PREDNISOLONE
     Indication: BURKITT^S LYMPHOMA
     Dosage: 30 MG/M2, EVERY 12 HOURS FROM DAYS 1-7
  3. METHOTREXATE SODIUM. [Suspect]
     Active Substance: METHOTREXATE SODIUM
     Indication: BURKITT^S LYMPHOMA
     Dosage: UNK
  4. VINCRISTINE SULFATE. [Suspect]
     Active Substance: VINCRISTINE SULFATE
     Indication: BURKITT^S LYMPHOMA
     Dosage: 1.5 MG/M2, CYCLIC GIVEN ON DAY 1 OF ROP (WEEK1)
  5. CYCLOPHOSPHAMIDE. [Suspect]
     Active Substance: CYCLOPHOSPHAMIDE
     Indication: BURKITT^S LYMPHOMA
     Dosage: UNK UNK, CYCLIC

REACTIONS (14)
  - Mucosal toxicity [Recovered/Resolved]
  - Thrombocytopenia [Recovered/Resolved]
  - Febrile neutropenia [Recovered/Resolved]
  - Endocarditis bacterial [Recovered/Resolved]
  - Affect lability [Recovered/Resolved]
  - Cholestasis [Recovered/Resolved]
  - Skin toxicity [Recovered/Resolved]
  - Neutropenic colitis [Recovered/Resolved]
  - Infection [Recovered/Resolved]
  - Hepatotoxicity [Recovered/Resolved]
  - Toxicity to various agents [Recovered/Resolved]
  - Depression [Recovered/Resolved]
  - Bone marrow toxicity [Recovered/Resolved]
  - Drug clearance decreased [Recovered/Resolved]
